FAERS Safety Report 7386401-0 (Version None)
Quarter: 2011Q1

REPORT INFORMATION
  Report Type: 
  Country: None (occurrence: None)
  Receive Date: 20110331
  Receipt Date: 20110323
  Transmission Date: 20110831
  Serious: Yes (Death)
  Sender: FDA-Public Use
  Company Number: PHHY2011AE25122

PATIENT
  Age: 51 Year
  Sex: Male
  Weight: 72 kg

DRUGS (1)
  1. RASILEZ [Suspect]
     Indication: ESSENTIAL HYPERTENSION
     Dosage: UNK
     Route: 048

REACTIONS (1)
  - ROAD TRAFFIC ACCIDENT [None]
